FAERS Safety Report 13946400 (Version 2)
Quarter: 2017Q4

REPORT INFORMATION
  Report Type: Spontaneous
  Country: US (occurrence: US)
  Receive Date: 20170907
  Receipt Date: 20171003
  Transmission Date: 20180320
  Serious: Yes (Other)
  Sender: FDA-Public Use
  Company Number: US-BAYER-2017-165203

PATIENT
  Age: 70 Year
  Sex: Male

DRUGS (4)
  1. AMBRISENTAN [Suspect]
     Active Substance: AMBRISENTAN
     Indication: PULMONARY ARTERIAL HYPERTENSION
     Dosage: 5.0 MG, QD
     Dates: start: 20170728
  2. AMBRISENTAN [Suspect]
     Active Substance: AMBRISENTAN
     Indication: PULMONARY ARTERIAL HYPERTENSION
     Dosage: 10 MG, QD
     Dates: start: 20170728
  3. ADEMPAS [Suspect]
     Active Substance: RIOCIGUAT
     Indication: PRODUCT USED FOR UNKNOWN INDICATION
     Dosage: 1 MG, TID
     Route: 065
  4. AMBRISENTAN [Suspect]
     Active Substance: AMBRISENTAN
     Indication: PULMONARY ARTERIAL HYPERTENSION
     Dosage: 5 MG, QD
     Route: 048
     Dates: start: 20170728, end: 20170907

REACTIONS (15)
  - Hypotension [None]
  - Insomnia [None]
  - Cardiac failure [None]
  - Abdominal discomfort [None]
  - Oedema [None]
  - Nausea [None]
  - Diarrhoea [Not Recovered/Not Resolved]
  - Oedema peripheral [None]
  - Fluid overload [Not Recovered/Not Resolved]
  - Anxiety [None]
  - Decreased appetite [None]
  - Fluid retention [None]
  - Epistaxis [None]
  - Fatigue [None]
  - Dizziness [None]

NARRATIVE: CASE EVENT DATE: 201709
